FAERS Safety Report 24536250 (Version 1)
Quarter: 2024Q4

REPORT INFORMATION
  Report Type: Spontaneous
  Country: GB (occurrence: GB)
  Receive Date: 20241022
  Receipt Date: 20241022
  Transmission Date: 20250114
  Serious: Yes (Life-Threatening, Other)
  Sender: ELI LILLY AND COMPANY
  Company Number: None

PATIENT
  Age: 43 Year
  Sex: Female
  Weight: 93 kg

DRUGS (3)
  1. MOUNJARO [Suspect]
     Active Substance: TIRZEPATIDE
     Indication: Weight control
     Dosage: 2.5 MG, WEEKLY (1/W)
     Route: 065
     Dates: start: 20240907, end: 20240923
  2. ESTRADIOL [Concomitant]
     Active Substance: ESTRADIOL
     Indication: Menopause
  3. MIRENA [Concomitant]
     Active Substance: LEVONORGESTREL
     Indication: Menopause

REACTIONS (2)
  - Cardiac arrest [Recovered/Resolved with Sequelae]
  - Dilated cardiomyopathy [Unknown]

NARRATIVE: CASE EVENT DATE: 20240923
